FAERS Safety Report 7659350-8 (Version None)
Quarter: 2011Q3

REPORT INFORMATION
  Report Type: 
  Country: None (occurrence: None)
  Receive Date: 20110805
  Receipt Date: 20110729
  Transmission Date: 20111222
  Serious: Yes (Hospitalization)
  Sender: FDA-Public Use
  Company Number: US-ROCHE-794544

PATIENT
  Age: 62 Year
  Sex: Male
  Weight: 86.4 kg

DRUGS (10)
  1. BEVACIZUMAB [Suspect]
     Dosage: OFF STUDY: 5 JULY 2011
     Route: 042
     Dates: start: 20110524, end: 20110614
  2. ATENOLOL [Concomitant]
     Route: 048
  3. AMLODIPINE [Concomitant]
     Route: 048
  4. DEXAMETHASONE [Concomitant]
     Route: 048
  5. LISINOPRIL [Concomitant]
     Route: 048
  6. IPILIMUMAB [Suspect]
     Dosage: FREQUENCY: Q3WEEKS X4: OFF STUDY: 5 JULY 2011
     Route: 042
     Dates: start: 20110524, end: 20110614
  7. METFORMIN HCL [Concomitant]
     Route: 048
  8. NASONEX [Concomitant]
  9. OMEPRAZOLE [Concomitant]
     Route: 048
  10. SELENIUM [Concomitant]
     Route: 048

REACTIONS (1)
  - SPINAL CORD COMPRESSION [None]
